FAERS Safety Report 18673854 (Version 5)
Quarter: 2022Q4

REPORT INFORMATION
  Report Type: Spontaneous
  Country: US (occurrence: US)
  Receive Date: 20201228
  Receipt Date: 20221004
  Transmission Date: 20230113
  Serious: No
  Sender: FDA-Public Use
  Company Number: US-PFIZER INC-2020513338

PATIENT
  Age: 53 Year
  Sex: Female

DRUGS (3)
  1. IBRANCE [Suspect]
     Active Substance: PALBOCICLIB
     Indication: Breast cancer female
     Dosage: 125 MG, CYCLIC (ONCE DAILY FOR 21 DAYS)
     Dates: start: 20200519
  2. IBRANCE [Suspect]
     Active Substance: PALBOCICLIB
     Dosage: 125 MG, CYCLIC (DAILY FOR 21 DAYS THEN OFF FOR 7 DAYS)
     Route: 048
     Dates: start: 20200520
  3. VITAMIN D [Concomitant]
     Active Substance: VITAMIN D NOS
     Dosage: 2000 IU

REACTIONS (5)
  - Fatigue [Not Recovered/Not Resolved]
  - Decreased appetite [Unknown]
  - Dry skin [Unknown]
  - White blood cell count decreased [Unknown]
  - Nausea [Unknown]
